FAERS Safety Report 18268253 (Version 2)
Quarter: 2020Q4

REPORT INFORMATION
  Report Type: Report from Study
  Country: US (occurrence: US)
  Receive Date: 20200915
  Receipt Date: 20201016
  Transmission Date: 20210113
  Serious: Yes (Death, Other)
  Sender: FDA-Public Use
  Company Number: US-VIFOR (INTERNATIONAL) INC.-VIT-2020-09411

PATIENT
  Age: 72 Year
  Sex: Female
  Weight: 84.4 kg

DRUGS (36)
  1. ATORVASTATIN [Concomitant]
     Active Substance: ATORVASTATIN
     Dosage: EVERY NIGHT
     Route: 048
  2. LOPERAMIDE [Concomitant]
     Active Substance: LOPERAMIDE
     Dosage: AS NEEDED
     Route: 048
  3. MONTELUKAST [Concomitant]
     Active Substance: MONTELUKAST SODIUM
     Dosage: AT BEDTIME
     Route: 048
  4. ALBUTEROL SULFATE. [Concomitant]
     Active Substance: ALBUTEROL SULFATE
     Dosage: 90 MCG/ACTUATION, INHALE 2 PUFF AS DIRECTED FOUR TIMES A DAY AS NEEDED.
  5. GABAPENTIN. [Concomitant]
     Active Substance: GABAPENTIN
     Route: 048
  6. LEVOTHYROXINE. [Concomitant]
     Active Substance: LEVOTHYROXINE
     Dosage: AS DIRECTED BEFORE BREAKFAST
     Route: 048
  7. LISINOPRIL. [Concomitant]
     Active Substance: LISINOPRIL
     Dosage: AS DIRECTED AT BED TIME
     Route: 048
  8. MIDODRINE [Concomitant]
     Active Substance: MIDODRINE
     Dosage: AS DIRECTED TAKE DURING DIALYSIS
     Route: 048
     Dates: start: 20190930
  9. VELPHORO [Suspect]
     Active Substance: SUCROFERRIC OXYHYDROXIDE
     Indication: BLOOD PHOSPHORUS INCREASED
     Dosage: TAKE 1 TABLET WITH MEALS
     Route: 048
     Dates: start: 20180925, end: 2019
  10. ALLOPURINOL. [Concomitant]
     Active Substance: ALLOPURINOL
     Route: 048
  11. DICYCLOMINE [Concomitant]
     Active Substance: DICYCLOMINE HYDROCHLORIDE
     Dosage: AS DIRECTED BEFORE MEALS AND AT BEDTIME.
     Route: 048
  12. HYDROCORTISONE. [Concomitant]
     Active Substance: HYDROCORTISONE
     Indication: RASH
     Dosage: APPLY A SMALL AMOUNT TO AFFECTED AREA TWICE A DAY
     Route: 061
  13. LOPERAMIDE [Concomitant]
     Active Substance: LOPERAMIDE
     Route: 048
  14. LORAZEPAM. [Concomitant]
     Active Substance: LORAZEPAM
     Dosage: HALF TABLET EVERY MORNING AS NEEDED
     Route: 048
  15. ZOFRAN [Concomitant]
     Active Substance: ONDANSETRON HYDROCHLORIDE
     Indication: NAUSEA
     Dosage: AS NEEDED.
     Route: 048
  16. ZOFRAN [Concomitant]
     Active Substance: ONDANSETRON HYDROCHLORIDE
     Indication: VOMITING
  17. CHOLESTYRAMINE LIGHT [Concomitant]
     Active Substance: CHOLESTYRAMINE
     Dosage: TAKE 1 PACKET DISSOLVED IN WATER TWICE A DAY
  18. VITAMIN B12 [Concomitant]
     Active Substance: CYANOCOBALAMIN
     Dosage: 1000 MCG/ML 1 KIT
     Route: 058
  19. FLUTICASONE. [Concomitant]
     Active Substance: FLUTICASONE
     Dosage: 50 MCG/ ACTUATION, SPRAY 2 SPRAY INTO BOTH NOSTRILS ONCE A DAY
     Route: 045
  20. LIDOCAINE-PRILOCAINE [Concomitant]
     Active Substance: LIDOCAINE\PRILOCAINE
     Dosage: LIDOCAINE 2.5% - PRILOCAINE 2.5%, APPLY 1 A SMALL AMOUNT TO SKIN AS DIRECTED APPLY A THIN A LAYER TO
     Route: 061
  21. NITROGLYCERINE [Concomitant]
     Active Substance: NITROGLYCERIN
     Indication: CHEST PAIN
     Dosage: 1 TABLET UNDER TONGUE AS NEEDED TAKE ONE TABLET EVERY 5 MIN FOR MAXIMUM OF 3 TABLETS AS NEEDED
     Route: 060
  22. TAMSULOSIN [Concomitant]
     Active Substance: TAMSULOSIN
     Dosage: EVERY NIGHT.
     Route: 048
  23. ALBUTEROL SULFATE. [Concomitant]
     Active Substance: ALBUTEROL SULFATE
     Dosage: 2.5MG/3ML (0.083%), 3ML AS DIRECTED EVERY SIX HOURS WHILE AWAKE
  24. BUMETANIDE. [Concomitant]
     Active Substance: BUMETANIDE
     Dosage: AS DIRECTED
     Route: 048
  25. ESCITALOPRAM [Concomitant]
     Active Substance: ESCITALOPRAM OXALATE
     Dosage: AS DIRECTED
     Route: 048
  26. HYDROCODONE-ACETAMINOPHEN [Concomitant]
     Active Substance: ACETAMINOPHEN\HYDROCODONE
     Dosage: 7.5 HYDROCODONE - 325 MG ACETAMINOPHEN. 1 TABLET EVERY EIGHT HOURS AS NEEDED.
     Route: 048
  27. HYDROXYZINE HYDROCHLORIDE. [Concomitant]
     Active Substance: HYDROXYZINE HYDROCHLORIDE
     Indication: PRURITUS
     Dosage: TWICE A DAY AS NEEDED
     Route: 048
  28. LORATADINE. [Concomitant]
     Active Substance: LORATADINE
     Indication: RHINORRHOEA
     Route: 048
  29. METHOCARBAMOL. [Concomitant]
     Active Substance: METHOCARBAMOL
     Route: 048
  30. VITAMINS NOS [Concomitant]
     Active Substance: VITAMINS
     Dosage: 8 MG IRON-800 MCG-1000 UNIT
     Route: 048
  31. WARFARIN [Concomitant]
     Active Substance: WARFARIN
     Dosage: TAKE 2 AND HALF TABLET ONCE A DAY AS DIRECTED
     Route: 048
  32. ATIVAN [Concomitant]
     Active Substance: LORAZEPAM
     Dosage: 1 TABLET AT BEDTIME AS NEEDED
     Route: 048
  33. CULTURELLE [Concomitant]
     Active Substance: LACTOBACILLUS RHAMNOSUS
     Dosage: 10 BILLION CELL CAPSULE, TAKE AS DIRECTED BEFORE MEALS.
  34. HUMALOG U [Concomitant]
     Dosage: TWICE A DAY AS DIRECTED WITH MEALS AS NEEDED
     Route: 058
  35. MONTELUKAST [Concomitant]
     Active Substance: MONTELUKAST SODIUM
     Route: 048
  36. PANTOPRAZOLE [Concomitant]
     Active Substance: PANTOPRAZOLE
     Dosage: AS DIRECTED
     Route: 048

REACTIONS (6)
  - Urinary tract infection [Unknown]
  - Abdominal pain [Unknown]
  - Clostridium difficile infection [Unknown]
  - Diarrhoea [Unknown]
  - Myocardial infarction [Fatal]
  - Vomiting [Unknown]

NARRATIVE: CASE EVENT DATE: 2019
